FAERS Safety Report 23364672 (Version 1)
Quarter: 2024Q1

REPORT INFORMATION
  Report Type: Spontaneous
  Country: US (occurrence: US)
  Receive Date: 20240104
  Receipt Date: 20240104
  Transmission Date: 20240409
  Serious: Yes (Hospitalization)
  Sender: FDA-Public Use
  Company Number: US-CHIESI-2023CHF07039

PATIENT
  Sex: Male

DRUGS (4)
  1. BETHKIS [Suspect]
     Active Substance: TOBRAMYCIN
     Indication: Epilepsy
     Dosage: 300 MILLIGRAM, QD
     Dates: start: 202302
  2. BETHKIS [Suspect]
     Active Substance: TOBRAMYCIN
     Indication: Off label use
  3. SABRIL [Concomitant]
     Active Substance: VIGABATRIN
     Indication: Product used for unknown indication
     Dosage: UNK
  4. VIGABATRIN [Concomitant]
     Active Substance: VIGABATRIN
     Indication: Product used for unknown indication
     Dosage: UNK

REACTIONS (3)
  - Respiratory syncytial virus infection [Unknown]
  - Off label use [Not Recovered/Not Resolved]
  - Off label use [Not Recovered/Not Resolved]

NARRATIVE: CASE EVENT DATE: 20230101
